FAERS Safety Report 10154887 (Version 1)
Quarter: 2014Q2

REPORT INFORMATION
  Report Type: Spontaneous
  Country: US (occurrence: US)
  Receive Date: 20140506
  Receipt Date: 20140506
  Transmission Date: 20141212
  Serious: Yes (Other)
  Sender: FDA-Public Use
  Company Number: US-BAYER-2014-065288

PATIENT
  Age: 50 Year
  Sex: Female

DRUGS (2)
  1. MIRENA [Suspect]
     Indication: CONTRACEPTION
     Dosage: 20 MCG/24HR, CONT
     Route: 015
     Dates: start: 2007, end: 20140217
  2. MIRENA [Suspect]
     Indication: MENORRHAGIA

REACTIONS (8)
  - Genital haemorrhage [None]
  - Abdominal pain lower [None]
  - Vaginal haemorrhage [None]
  - Device misuse [None]
  - Amenorrhoea [None]
  - Atrophic vulvovaginitis [None]
  - Lipids increased [None]
  - Blood follicle stimulating hormone increased [None]
